FAERS Safety Report 25403980 (Version 1)
Quarter: 2025Q2

REPORT INFORMATION
  Report Type: Spontaneous
  Country: US (occurrence: US)
  Receive Date: 20250606
  Receipt Date: 20250606
  Transmission Date: 20250716
  Serious: Yes (Life-Threatening)
  Sender: BOEHRINGER INGELHEIM
  Company Number: US-BoehringerIngelheim-2025-BI-074901

PATIENT
  Sex: Female

DRUGS (1)
  1. MICARDIS [Suspect]
     Active Substance: TELMISARTAN
     Indication: Hypertension

REACTIONS (4)
  - Cerebrovascular accident [Unknown]
  - Nasal congestion [Unknown]
  - Dyspnoea [Unknown]
  - Drug ineffective [Unknown]
